FAERS Safety Report 10261136 (Version 2)
Quarter: 2014Q2

REPORT INFORMATION
  Report Type: Report from Study
  Country: IT (occurrence: IT)
  Receive Date: 20140626
  Receipt Date: 20140626
  Transmission Date: 20141212
  Serious: Yes (Hospitalization)
  Sender: FDA-Public Use
  Company Number: IT-ROCHE-1402103

PATIENT
  Age: 72 Year
  Sex: Male
  Weight: 101 kg

DRUGS (16)
  1. OBINUTUZUMAB [Suspect]
     Indication: CHRONIC LYMPHOCYTIC LEUKAEMIA
     Dosage: C1D1  INFUSION RATE: 12.5
     Route: 042
     Dates: start: 20140401, end: 20140401
  2. OBINUTUZUMAB [Suspect]
     Dosage: C1D2 INFUSION RATE: 40
     Route: 042
     Dates: start: 20140402, end: 20140402
  3. OBINUTUZUMAB [Suspect]
     Dosage: C1D8 INFUSION RATE: 400
     Route: 042
     Dates: start: 20140408, end: 20140408
  4. OBINUTUZUMAB [Suspect]
     Dosage: C1D15  INFUSION RATE: 400, LAST DOSE PRIOR TO SAE:29/APR/2014
     Route: 042
     Dates: start: 20140415, end: 20140415
  5. CHLORAMBUCIL [Suspect]
     Indication: CHRONIC LYMPHOCYTIC LEUKAEMIA
     Dosage: C1D1
     Route: 048
     Dates: start: 20140401, end: 20140401
  6. CHLORAMBUCIL [Suspect]
     Dosage: C1D15, DATE F LAST DOSE PRIOR TO EVENT:29/APR/2014
     Route: 048
     Dates: start: 20140415, end: 20140415
  7. CHLORAMBUCIL [Suspect]
     Route: 048
     Dates: start: 20140604, end: 20140604
  8. PYRIDOXINE [Concomitant]
     Route: 065
     Dates: start: 20140325
  9. ALLOPURINOL [Concomitant]
     Route: 048
     Dates: start: 20140331
  10. ISONIAZIDE [Concomitant]
     Route: 048
     Dates: start: 20140328
  11. LANSOPRAZOLE [Concomitant]
     Route: 048
     Dates: start: 20140328
  12. TRIATEC (ITALY) [Concomitant]
     Dosage: 2.5 + 15 MG
     Route: 048
     Dates: start: 20140328
  13. ASA [Concomitant]
     Route: 048
     Dates: start: 20140328
  14. MAGALDRATE [Concomitant]
     Route: 048
     Dates: start: 20140402
  15. DELORAZEPAM [Concomitant]
     Route: 065
     Dates: start: 20140323
  16. DELORAZEPAM [Concomitant]
     Dosage: 10 DROPS
     Route: 065
     Dates: start: 20140423

REACTIONS (1)
  - Cardiac failure acute [Recovered/Resolved with Sequelae]
